FAERS Safety Report 9206885 (Version 2)
Quarter: 2013Q2

REPORT INFORMATION
  Report Type: Report from Study
  Country: CA (occurrence: CA)
  Receive Date: 20130403
  Receipt Date: 20130409
  Transmission Date: 20140414
  Serious: Yes (Hospitalization, Other)
  Sender: FDA-Public Use
  Company Number: CA-ABBOTT-13P-028-1070623-00

PATIENT
  Age: 81 Year
  Sex: Male
  Weight: 86.26 kg

DRUGS (1)
  1. LUPRON DEPOT [Suspect]
     Indication: PROSTATE CANCER
     Route: 030

REACTIONS (3)
  - Fall [Unknown]
  - Head injury [Unknown]
  - Confusional state [Unknown]
